FAERS Safety Report 12752784 (Version 1)
Quarter: 2016Q3

REPORT INFORMATION
  Report Type: Spontaneous
  Country: US (occurrence: US)
  Receive Date: 20160916
  Receipt Date: 20160916
  Transmission Date: 20161109
  Serious: No
  Sender: FDA-Public Use
  Company Number: US-SUN PHARMACEUTICAL INDUSTRIES LTD-2015US-111861

PATIENT
  Sex: Male

DRUGS (1)
  1. SUMATRIPTAN. [Suspect]
     Active Substance: SUMATRIPTAN
     Indication: HEADACHE
     Dosage: UNK
     Route: 065

REACTIONS (2)
  - Product packaging issue [Unknown]
  - Incorrect product storage [Unknown]
